FAERS Safety Report 4686407-6 (Version None)
Quarter: 2005Q2

REPORT INFORMATION
  Report Type: 
  Country: None (occurrence: None)
  Receive Date: 20050609
  Receipt Date: 20050519
  Transmission Date: 20051028
  Serious: Yes (Hospitalization)
  Sender: FDA-Public Use
  Company Number: RO-ROCHE-405266

PATIENT
  Age: 45 Year
  Weight: 72 kg

DRUGS (5)
  1. COPEGUS [Suspect]
     Route: 048
     Dates: start: 20040901, end: 20050302
  2. COPEGUS [Suspect]
     Route: 048
     Dates: start: 20050401
  3. PEGASYS [Suspect]
     Dosage: STRENGTH REPORTED AS 180 MCG/FL.
     Route: 058
     Dates: start: 20040901, end: 20050331
  4. PEGASYS [Suspect]
     Route: 058
     Dates: start: 20050401
  5. BENAZEPRIL HCL [Concomitant]
     Route: 048
     Dates: start: 20040615

REACTIONS (1)
  - NODULE [None]
